FAERS Safety Report 25715734 (Version 1)
Quarter: 2025Q3

REPORT INFORMATION
  Report Type: Spontaneous
  Country: US (occurrence: US)
  Receive Date: 20250822
  Receipt Date: 20250822
  Transmission Date: 20251020
  Serious: Yes (Hospitalization)
  Sender: NANTKWEST
  Company Number: US-NantWorks-2025-US-NANT-00024

PATIENT
  Age: 63 Year
  Sex: Male

DRUGS (2)
  1. ANKTIVA [Suspect]
     Active Substance: NOGAPENDEKIN ALFA INBAKICEPT-PMLN
     Indication: Bladder transitional cell carcinoma
  2. BCG [Concomitant]
     Indication: Bladder transitional cell carcinoma

REACTIONS (1)
  - Urinary tract infection [Recovered/Resolved]
